FAERS Safety Report 19092388 (Version 2)
Quarter: 2021Q2

REPORT INFORMATION
  Report Type: Spontaneous
  Country: US (occurrence: US)
  Receive Date: 20210405
  Receipt Date: 20210420
  Transmission Date: 20210717
  Serious: Yes (Hospitalization)
  Sender: FDA-Public Use
  Company Number: US-MYLANLABS-2021M1020003

PATIENT
  Age: 66 Year
  Sex: Male
  Weight: 77.1 kg

DRUGS (4)
  1. BICALUTAMIDE. [Suspect]
     Active Substance: BICALUTAMIDE
     Indication: ANTIANDROGEN THERAPY
     Dosage: 50 MILLIGRAM, QD ANDROGEN BLOCKADE THERAPY
     Route: 065
     Dates: start: 20171011, end: 20180312
  2. BICALUTAMIDE. [Suspect]
     Active Substance: BICALUTAMIDE
     Indication: PROSTATE CANCER
  3. LEUPROLIDE                         /00726901/ [Suspect]
     Active Substance: LEUPROLIDE
     Indication: ANTIANDROGEN THERAPY
     Dosage: 22 MILLIGRAM, Q3MONTHS
     Route: 058
     Dates: start: 20171012, end: 20180111
  4. LEUPROLIDE                         /00726901/ [Suspect]
     Active Substance: LEUPROLIDE
     Indication: PROSTATE CANCER

REACTIONS (3)
  - Pneumonitis [Not Recovered/Not Resolved]
  - Muscular weakness [Recovered/Resolved with Sequelae]
  - Weight increased [Recovered/Resolved with Sequelae]
